FAERS Safety Report 9360411 (Version 2)
Quarter: 2013Q3

REPORT INFORMATION
  Report Type: Spontaneous
  Country: FR (occurrence: FR)
  Receive Date: 20130621
  Receipt Date: 20130702
  Transmission Date: 20140515
  Serious: Yes (Other)
  Sender: FDA-Public Use
  Company Number: FR-B.I. PHARMACEUTICALS,INC./RIDGEFIELD-2013-FF-01672FF

PATIENT
  Age: 85 Year
  Sex: Female

DRUGS (7)
  1. PRADAXA [Suspect]
     Indication: ATRIAL FIBRILLATION
     Dosage: 220 MG
     Route: 048
     Dates: start: 201305, end: 20130607
  2. FUROSEMIDE [Concomitant]
  3. CRESTOR [Concomitant]
  4. LEVOTHYROX [Concomitant]
  5. CORDARONE [Concomitant]
  6. EBIXA [Concomitant]
  7. EXELON [Concomitant]

REACTIONS (4)
  - Diarrhoea haemorrhagic [Not Recovered/Not Resolved]
  - Melaena [Not Recovered/Not Resolved]
  - Renal failure [Recovered/Resolved]
  - Anaemia [Recovered/Resolved]
